FAERS Safety Report 24164491 (Version 4)
Quarter: 2024Q4

REPORT INFORMATION
  Report Type: Spontaneous
  Country: FR (occurrence: FR)
  Receive Date: 20240801
  Receipt Date: 20241028
  Transmission Date: 20250115
  Serious: Yes (Death, Life-Threatening, Hospitalization, Other)
  Sender: PURDUE
  Company Number: FR-PURDUE PHARMA-USA-2024-0311078

PATIENT
  Age: 55 Year
  Sex: Female

DRUGS (7)
  1. OXYCONTIN [Suspect]
     Active Substance: OXYCODONE HYDROCHLORIDE
     Indication: Product used for unknown indication
     Dosage: 120 MILLIGRAM
     Route: 065
  2. OXYCODONE HYDROCHLORIDE [Suspect]
     Active Substance: OXYCODONE HYDROCHLORIDE
     Indication: Completed suicide
     Dosage: UNK
     Route: 065
     Dates: start: 2023, end: 2023
  3. TRAMADOL [Suspect]
     Active Substance: TRAMADOL
     Indication: Completed suicide
     Dosage: UNK
     Route: 065
     Dates: start: 2023, end: 2023
  4. DOXEPIN [Suspect]
     Active Substance: DOXEPIN
     Indication: Completed suicide
     Dosage: UNK
     Route: 065
     Dates: start: 2023, end: 2023
  5. MORPHINE [Suspect]
     Active Substance: MORPHINE
     Indication: Product used for unknown indication
     Dosage: UNK
     Route: 065
  6. CODEINE [Concomitant]
     Active Substance: CODEINE
     Indication: Product used for unknown indication
     Dosage: UNK
     Route: 065
  7. OXYMORPHONE [Concomitant]
     Active Substance: OXYMORPHONE
     Indication: Product used for unknown indication
     Dosage: UNK
     Route: 065

REACTIONS (8)
  - Completed suicide [Fatal]
  - Congestive hepatopathy [Fatal]
  - Pulmonary congestion [Fatal]
  - Bezoar [Fatal]
  - Toxicity to various agents [Fatal]
  - Drug abuse [Fatal]
  - Intentional overdose [Fatal]
  - Intentional product misuse [Fatal]

NARRATIVE: CASE EVENT DATE: 20230101
